FAERS Safety Report 14202586 (Version 1)
Quarter: 2017Q4

REPORT INFORMATION
  Report Type: Report from Study
  Country: MX (occurrence: MX)
  Receive Date: 20171118
  Receipt Date: 20171118
  Transmission Date: 20180321
  Serious: Yes (Other)
  Sender: FDA-Public Use
  Company Number: MX-ROCHE-2024818

PATIENT
  Age: 40 Year
  Sex: Female

DRUGS (3)
  1. HERCEPTIN [Suspect]
     Active Substance: TRASTUZUMAB
     Indication: BREAST CANCER
     Route: 058
     Dates: end: 20171103
  2. FLOR-ESSENCE [Concomitant]
     Indication: BREAST CANCER
     Route: 065
     Dates: start: 2015
  3. HERCEPTIN [Suspect]
     Active Substance: TRASTUZUMAB
     Indication: BREAST CANCER
     Route: 042
     Dates: start: 201611

REACTIONS (11)
  - Headache [Not Recovered/Not Resolved]
  - Intentional product misuse [Unknown]
  - Ill-defined disorder [Not Recovered/Not Resolved]
  - Fatigue [Not Recovered/Not Resolved]
  - Nail discolouration [Unknown]
  - Depression [Not Recovered/Not Resolved]
  - Pain [Recovering/Resolving]
  - Hot flush [Recovering/Resolving]
  - Off label use [Unknown]
  - Cardiac disorder [Not Recovered/Not Resolved]
  - Arthralgia [Recovering/Resolving]

NARRATIVE: CASE EVENT DATE: 201611
